FAERS Safety Report 9494013 (Version 4)
Quarter: 2013Q4

REPORT INFORMATION
  Report Type: Spontaneous
  Country: JP (occurrence: JP)
  Receive Date: 20130903
  Receipt Date: 20131118
  Transmission Date: 20140711
  Serious: Yes (Death)
  Sender: FDA-Public Use
  Company Number: JP-BRISTOL-MYERS SQUIBB COMPANY-19167782

PATIENT
  Age: 36 Year
  Sex: Female

DRUGS (6)
  1. ABILIFY TABS [Suspect]
     Indication: SCHIZOPHRENIA
     Dosage: 6MG/D-6OCT11-UNK, ?30MG/D-UNK-4JAN12?30MG/D-5JAN-7MAY12-124D?24MG/D-8-9MAY12-2D
     Route: 048
     Dates: start: 20111006, end: 20120509
  2. ABILIFY TABS [Suspect]
     Indication: COMPULSIONS
     Dosage: 6MG/D-6OCT11-UNK, ?30MG/D-UNK-4JAN12?30MG/D-5JAN-7MAY12-124D?24MG/D-8-9MAY12-2D
     Route: 048
     Dates: start: 20111006, end: 20120509
  3. AKINETON [Concomitant]
     Dates: end: 20120413
  4. MEILAX [Concomitant]
     Dates: start: 20120413
  5. ROHYPNOL [Concomitant]
     Dosage: TABS
     Dates: start: 20120413
  6. MYSLEE [Concomitant]
     Dosage: TABS
     Dates: start: 20120413

REACTIONS (1)
  - Neuroleptic malignant syndrome [Fatal]
